FAERS Safety Report 7623623-5 (Version None)
Quarter: 2011Q3

REPORT INFORMATION
  Report Type: 
  Country: None (occurrence: None)
  Receive Date: 20110720
  Receipt Date: 20110705
  Transmission Date: 20111222
  Serious: Yes (Other)
  Sender: FDA-Public Use
  Company Number: DE-SANOFI-AVENTIS-2011SA044390

PATIENT
  Age: 75 Year
  Sex: Male
  Weight: 85 kg

DRUGS (11)
  1. VERAPAMIL [Concomitant]
  2. VERAPAMIL [Concomitant]
     Dates: start: 20101201, end: 20101206
  3. VERAPAMIL [Concomitant]
     Dates: start: 20101208, end: 20101209
  4. ATORVASTATIN [Concomitant]
  5. DIGITOXIN TAB [Concomitant]
     Dates: end: 20101126
  6. INSPRA [Concomitant]
     Dates: start: 20101201
  7. DRONEDARONE HCL [Suspect]
     Indication: ATRIAL FIBRILLATION
     Route: 048
     Dates: start: 20101122
  8. ASPIRIN [Concomitant]
  9. FUROSEMIDE [Concomitant]
  10. FUROSEMIDE [Concomitant]
     Dates: start: 20101206
  11. PHENPROCOUMON [Concomitant]

REACTIONS (1)
  - CARDIAC FAILURE [None]
